FAERS Safety Report 15047760 (Version 1)
Quarter: 2018Q2

REPORT INFORMATION
  Report Type: Spontaneous
  Country: US (occurrence: US)
  Receive Date: 20180601
  Receipt Date: 20180601
  Transmission Date: 20180711
  Serious: Yes (Hospitalization)
  Sender: FDA-Public Use
  Company Number: None

PATIENT
  Age: 2 Year
  Sex: Female

DRUGS (13)
  1. CIPROFLOXACIN. [Concomitant]
     Active Substance: CIPROFLOXACIN
  2. ZYRTEC [Concomitant]
     Active Substance: CETIRIZINE HYDROCHLORIDE
  3. LEVOTHYROXIN [Concomitant]
     Active Substance: LEVOTHYROXINE
  4. KEPPRA [Concomitant]
     Active Substance: LEVETIRACETAM
  5. OAFI [Concomitant]
  6. VIGABATRIN. [Suspect]
     Active Substance: VIGABATRIN
     Indication: EPILEPSY
     Route: 048
     Dates: start: 20171023
  7. LEYOCARNITIN [Concomitant]
  8. CLONIDINE. [Concomitant]
     Active Substance: CLONIDINE
  9. GABAPENTIN. [Concomitant]
     Active Substance: GABAPENTIN
  10. NEXIUM [Concomitant]
     Active Substance: ESOMEPRAZOLE MAGNESIUM
  11. CLARITIN [Concomitant]
     Active Substance: LORATADINE
  12. DEPAKENE [Concomitant]
     Active Substance: VALPROIC ACID
  13. ROBNUL FORT [Concomitant]

REACTIONS (1)
  - Pneumonia [None]

NARRATIVE: CASE EVENT DATE: 201805
